FAERS Safety Report 7438782-7 (Version None)
Quarter: 2011Q2

REPORT INFORMATION
  Report Type: 
  Country: None (occurrence: None)
  Receive Date: 20110426
  Receipt Date: 20110426
  Transmission Date: 20111010
  Serious: Yes (Hospitalization, Other)
  Sender: FDA-Public Use
  Company Number: CA-ABBOTT-10P-028-0679087-00

PATIENT
  Sex: Male
  Weight: 104.42 kg

DRUGS (8)
  1. HUMIRA [Suspect]
     Indication: CROHN'S DISEASE
     Route: 058
     Dates: start: 20100727, end: 20100824
  2. GLYBURIDE [Concomitant]
     Indication: DIABETES MELLITUS
     Dosage: QID
  3. METFORMIN [Concomitant]
     Indication: DIABETES MELLITUS
     Dosage: QID
  4. METOPROLOL TARTRATE [Concomitant]
     Indication: BLOOD PRESSURE
     Route: 048
     Dates: start: 19950101
  5. LIPITOR [Concomitant]
     Indication: BLOOD CHOLESTEROL
     Route: 048
  6. IMURAN [Concomitant]
     Indication: PRODUCT USED FOR UNKNOWN INDICATION
     Route: 048
     Dates: start: 20100501
  7. HUMIRA [Suspect]
  8. ASACOL [Concomitant]
     Indication: CROHN'S DISEASE
     Dosage: TIC

REACTIONS (11)
  - CROHN'S DISEASE [None]
  - FREQUENT BOWEL MOVEMENTS [None]
  - PAIN IN EXTREMITY [None]
  - ABDOMINAL PAIN LOWER [None]
  - NECK PAIN [None]
  - BLOOD GLUCOSE FLUCTUATION [None]
  - MUSCULOSKELETAL PAIN [None]
  - PAIN [None]
  - URINARY TRACT INFECTION [None]
  - CYSTITIS [None]
  - NAUSEA [None]
